FAERS Safety Report 11809602 (Version 2)
Quarter: 2016Q1

REPORT INFORMATION
  Report Type: Spontaneous
  Country: US (occurrence: US)
  Receive Date: 20151208
  Receipt Date: 20160127
  Transmission Date: 20160525
  Serious: Yes (Death)
  Sender: FDA-Public Use
  Company Number: US-009507513-1512USA001959

PATIENT
  Age: 75 Year
  Sex: Female
  Weight: 69.39 kg

DRUGS (6)
  1. PREDNISONE. [Concomitant]
     Active Substance: PREDNISONE
     Dosage: 10 UNK, UNK
     Route: 048
  2. CARVEDILOL. [Concomitant]
     Active Substance: CARVEDILOL
  3. METOPROLOL. [Concomitant]
     Active Substance: METOPROLOL
  4. KEYTRUDA [Suspect]
     Active Substance: PEMBROLIZUMAB
     Indication: LUNG NEOPLASM MALIGNANT
     Dosage: 142 MG, Q3W
     Route: 042
     Dates: start: 20150814, end: 20150901
  5. LOVASTATIN. [Concomitant]
     Active Substance: LOVASTATIN
     Route: 048
  6. LOSARTAN. [Concomitant]
     Active Substance: LOSARTAN

REACTIONS (8)
  - Lymphocyte count decreased [Unknown]
  - Blood glucose increased [Unknown]
  - Granulocyte count increased [Unknown]
  - Alanine aminotransferase increased [Unknown]
  - Death [Fatal]
  - Cough [Unknown]
  - Red cell distribution width increased [Unknown]
  - Dyspnoea [Unknown]

NARRATIVE: CASE EVENT DATE: 201509
